FAERS Safety Report 7941505-6 (Version None)
Quarter: 2011Q4

REPORT INFORMATION
  Report Type: 
  Country: None (occurrence: None)
  Receive Date: 20111128
  Receipt Date: 20111114
  Transmission Date: 20120403
  Serious: Yes (Hospitalization)
  Sender: FDA-Public Use
  Company Number: ES-SANOFI-AVENTIS-2011SA074781

PATIENT
  Age: 25 Year
  Sex: Female

DRUGS (6)
  1. ARAVA [Suspect]
     Indication: ARTHRITIS
     Route: 065
     Dates: start: 20081101, end: 20110201
  2. HUMIRA [Suspect]
     Indication: ARTHRITIS
     Route: 065
     Dates: start: 20100701, end: 20110201
  3. OMEPRAZOLE [Concomitant]
  4. ERYTHROMYCIN ETHLSUCCINATE [Suspect]
     Indication: ODYNOPHAGIA
     Dosage: FORM: CODED AS 100
     Route: 065
     Dates: start: 20110207, end: 20110217
  5. INACID [Suspect]
     Indication: ARTHRITIS
     Route: 065
     Dates: start: 20061201, end: 20110217
  6. METHYLPREDNISOLONE [Concomitant]

REACTIONS (1)
  - TRANSAMINASES INCREASED [None]
